FAERS Safety Report 5602414-0 (Version None)
Quarter: 2008Q1

REPORT INFORMATION
  Report Type: 
  Country: None (occurrence: None)
  Receive Date: 20080122
  Receipt Date: 20080109
  Transmission Date: 20080703
  Serious: Yes (Hospitalization)
  Sender: FDA-Public Use
  Company Number: MPS1-1000005

PATIENT
  Age: 15 Year
  Sex: Female
  Weight: 74 kg

DRUGS (4)
  1. ALDURAZYME [Suspect]
     Indication: MUCOPOLYSACCHARIDOSIS I
     Dosage: 17.4 MG, QW, INTRAVENOUS
     Route: 042
     Dates: start: 20030711
  2. LIDOCAINE [Concomitant]
  3. DIPHENHYDRAMINE (AMMONIUM CHLORIDE) ORAL [Concomitant]
  4. ACETAMINOPHEN (PARACETAMOL) ORAL DRUG UNSPECIFIED FORM [Concomitant]

REACTIONS (1)
  - PNEUMONIA [None]
